FAERS Safety Report 9745351 (Version 1)
Quarter: 2013Q4

REPORT INFORMATION
  Report Type: Report from Study
  Country: US (occurrence: US)
  Receive Date: 20131211
  Receipt Date: 20131211
  Transmission Date: 20140711
  Serious: Yes (Hospitalization)
  Sender: FDA-Public Use
  Company Number: US-TEVA-449245USA

PATIENT
  Age: 54 Year
  Sex: Female

DRUGS (1)
  1. COPAXONE [Suspect]
     Indication: MULTIPLE SCLEROSIS
     Dates: start: 20130108, end: 20131128

REACTIONS (6)
  - Malaise [Unknown]
  - Feeling abnormal [Unknown]
  - Pain [Unknown]
  - Chest pain [Unknown]
  - Pharyngeal oedema [Unknown]
  - Swollen tongue [Unknown]
